FAERS Safety Report 13392846 (Version 1)
Quarter: 2017Q1

REPORT INFORMATION
  Report Type: Spontaneous
  Country: FR (occurrence: FR)
  Receive Date: 20170331
  Receipt Date: 20170331
  Transmission Date: 20170429
  Serious: Yes (Hospitalization)
  Sender: FDA-Public Use
  Company Number: FR-TOLMAR, INC.-2017FR003848

PATIENT
  Age: 58 Year
  Sex: Male

DRUGS (3)
  1. ZYTIGA [Suspect]
     Active Substance: ABIRATERONE ACETATE
     Indication: PROSTATE CANCER
     Dosage: 250 MG, UNK
     Route: 048
     Dates: start: 201701, end: 20170309
  2. ELIGARD [Suspect]
     Active Substance: LEUPROLIDE ACETATE
     Indication: PROSTATE CANCER
     Dosage: UNK
     Route: 058
  3. CASODEX [Suspect]
     Active Substance: BICALUTAMIDE
     Indication: PROSTATE CANCER
     Dosage: UNK
     Route: 048
     Dates: end: 201701

REACTIONS (10)
  - Dry skin [Unknown]
  - Eczema [Not Recovered/Not Resolved]
  - Pruritus [Not Recovered/Not Resolved]
  - Purulent discharge [Unknown]
  - Excoriation [Unknown]
  - Insomnia [Unknown]
  - Skin lesion [Unknown]
  - Rash macular [Unknown]
  - Oedema peripheral [Not Recovered/Not Resolved]
  - Bloody discharge [Unknown]

NARRATIVE: CASE EVENT DATE: 20170228
